FAERS Safety Report 5465773-8 (Version None)
Quarter: 2007Q3

REPORT INFORMATION
  Report Type: 
  Country: None (occurrence: None)
  Receive Date: 20070924
  Receipt Date: 20070920
  Transmission Date: 20080115
  Serious: Yes (Other)
  Sender: FDA-Public Use
  Company Number: B0485855A

PATIENT
  Sex: Female
  Weight: 2.8 kg

DRUGS (1)
  1. RETROVIR [Suspect]
     Indication: ANTIVIRAL PROPHYLAXIS
     Dosage: 56MG PER DAY
     Route: 048
     Dates: start: 20070905

REACTIONS (3)
  - ASPARTATE AMINOTRANSFERASE INCREASED [None]
  - INCORRECT DOSE ADMINISTERED [None]
  - OVERDOSE [None]
